FAERS Safety Report 25486450 (Version 2)
Quarter: 2025Q3

REPORT INFORMATION
  Report Type: Spontaneous
  Country: CN (occurrence: CN)
  Receive Date: 20250627
  Receipt Date: 20250709
  Transmission Date: 20251021
  Serious: Yes (Death, Other)
  Sender: BAXTER
  Company Number: CN-BAXTER-2025BAX017205

PATIENT
  Age: 10 Year
  Sex: Male
  Weight: 27 kg

DRUGS (8)
  1. MANNITOL [Suspect]
     Active Substance: MANNITOL
     Indication: Reduction of increased intracranial pressure
     Route: 041
     Dates: start: 201904
  2. MANNITOL [Suspect]
     Active Substance: MANNITOL
     Route: 042
     Dates: start: 201904
  3. MANNITOL [Suspect]
     Active Substance: MANNITOL
     Route: 042
     Dates: start: 201904
  4. MANNITOL [Suspect]
     Active Substance: MANNITOL
     Route: 042
     Dates: start: 201904
  5. ACYCLOVIR [Suspect]
     Active Substance: ACYCLOVIR
     Indication: Antiviral treatment
     Route: 065
     Dates: start: 201904
  6. ACYCLOVIR [Suspect]
     Active Substance: ACYCLOVIR
     Indication: Herpes simplex encephalitis
     Route: 065
     Dates: start: 201904
  7. ACYCLOVIR [Suspect]
     Active Substance: ACYCLOVIR
     Route: 065
     Dates: start: 201904
  8. OMEPRAZOLE [Concomitant]
     Active Substance: OMEPRAZOLE
     Indication: Gastrointestinal disorder prophylaxis
     Route: 065
     Dates: start: 201904

REACTIONS (10)
  - Circulatory collapse [Fatal]
  - Non-compaction cardiomyopathy [Fatal]
  - Respiratory arrest [Unknown]
  - Loss of consciousness [Unknown]
  - Unresponsive to stimuli [Unknown]
  - Cyanosis [Unknown]
  - Fall [Unknown]
  - Heart sounds abnormal [Unknown]
  - Overdose [Unknown]
  - Cardiac arrest [Unknown]

NARRATIVE: CASE EVENT DATE: 20190401
